FAERS Safety Report 7733582-2 (Version None)
Quarter: 2011Q3

REPORT INFORMATION
  Report Type: 
  Country: None (occurrence: None)
  Receive Date: 20110907
  Receipt Date: 20110824
  Transmission Date: 20111222
  Serious: No
  Sender: FDA-Public Use
  Company Number: CA-ELI_LILLY_AND_COMPANY-CA201108007334

PATIENT
  Sex: Female

DRUGS (5)
  1. ASPIRIN [Concomitant]
  2. ZYPREXA [Suspect]
     Dosage: 5 MG, UNK
     Route: 048
  3. ZYPREXA [Suspect]
     Dosage: 2.5 MG, UNK
  4. EFFEXOR XR [Concomitant]
  5. RAMIPRIL [Concomitant]

REACTIONS (5)
  - DIABETES MELLITUS [None]
  - BLOOD CHOLESTEROL INCREASED [None]
  - ALANINE AMINOTRANSFERASE INCREASED [None]
  - WHITE BLOOD CELL COUNT INCREASED [None]
  - ASPARTATE AMINOTRANSFERASE INCREASED [None]
